FAERS Safety Report 7362435-7 (Version None)
Quarter: 2011Q1

REPORT INFORMATION
  Report Type: 
  Country: None (occurrence: None)
  Receive Date: 20110318
  Receipt Date: 20110316
  Transmission Date: 20110831
  Serious: Yes (Death)
  Sender: FDA-Public Use
  Company Number: US-AMGEN-USASP2011013250

PATIENT
  Sex: Female

DRUGS (4)
  1. CORTICOSTEROIDS [Concomitant]
     Dosage: UNK
     Dates: start: 20090215
  2. RITUXIMAB [Concomitant]
     Dosage: UNK
     Dates: start: 20090224
  3. NPLATE [Suspect]
     Indication: IDIOPATHIC THROMBOCYTOPENIC PURPURA
     Dosage: UNK A?G/KG, UNK
     Dates: start: 20090227, end: 20090313
  4. NPLATE [Suspect]
     Dates: start: 20090306, end: 20090313

REACTIONS (1)
  - CARDIAC FAILURE CONGESTIVE [None]
